FAERS Safety Report 14289071 (Version 2)
Quarter: 2018Q1

REPORT INFORMATION
  Report Type: Spontaneous
  Country: US (occurrence: US)
  Receive Date: 20171214
  Receipt Date: 20180220
  Transmission Date: 20180509
  Serious: Yes (Death, Other)
  Sender: FDA-Public Use
  Company Number: US-PFIZER INC-2016472155

PATIENT
  Age: 77 Year
  Sex: Male
  Weight: 71.66 kg

DRUGS (1)
  1. REVATIO [Suspect]
     Active Substance: SILDENAFIL CITRATE
     Indication: PULMONARY ARTERIAL HYPERTENSION
     Dosage: 20 MG, 2X/DAY
     Route: 048
     Dates: start: 20131129, end: 20171114

REACTIONS (4)
  - Atrial fibrillation [Fatal]
  - Condition aggravated [Fatal]
  - Cardiac failure congestive [Fatal]
  - Ventricular septal defect [Fatal]
